FAERS Safety Report 4595250-8 (Version None)
Quarter: 2005Q1

REPORT INFORMATION
  Report Type: 
  Country: None (occurrence: None)
  Receive Date: 20050225
  Receipt Date: 20050211
  Transmission Date: 20050727
  Serious: Yes (Death, Hospitalization)
  Sender: FDA-Public Use
  Company Number: 2005UW00085

PATIENT
  Age: 59 Year
  Sex: Male
  Weight: 74.8435 kg

DRUGS (9)
  1. CRESTOR [Suspect]
     Indication: HYPERLIPIDAEMIA
     Dosage: 10 MG QD PO
     Route: 048
     Dates: start: 20040501, end: 20040601
  2. ACTIVASE [Suspect]
     Dates: start: 20040802, end: 20040802
  3. PAXIL [Concomitant]
  4. NORTRIPTYLINE HCL [Concomitant]
  5. RESTORIL [Concomitant]
  6. LASIX [Concomitant]
  7. RHINOCORT [Concomitant]
  8. NIACIN [Concomitant]
  9. ASPIRIN [Concomitant]

REACTIONS (13)
  - ACTIVATED PARTIAL THROMBOPLASTIN TIME PROLONGED [None]
  - ATRIAL FIBRILLATION [None]
  - BLOOD PRESSURE INCREASED [None]
  - BRAIN STEM HAEMORRHAGE [None]
  - CARDIOMEGALY [None]
  - CEREBRAL HAEMORRHAGE [None]
  - CONDITION AGGRAVATED [None]
  - DEPRESSION [None]
  - HAEMORRHAGIC INFARCTION [None]
  - HAEMORRHAGIC TRANSFORMATION STROKE [None]
  - LIVER FUNCTION TEST ABNORMAL [None]
  - PAIN [None]
  - VENTRICULAR HYPERTROPHY [None]
